FAERS Safety Report 18318982 (Version 1)
Quarter: 2020Q3

REPORT INFORMATION
  Report Type: Spontaneous
  Country: US (occurrence: US)
  Receive Date: 20200928
  Receipt Date: 20200928
  Transmission Date: 20201103
  Serious: No
  Sender: FDA-Public Use
  Company Number: US-CURIUM-202000357

PATIENT
  Age: 88 Year
  Sex: Female

DRUGS (2)
  1. ULTRA?TECHNEKOW [Suspect]
     Active Substance: TECHNETIUM TC-99M
     Indication: RADIOISOTOPE SCAN
     Route: 065
     Dates: start: 20200906, end: 20200906
  2. TECHNESCAN MAG3 [Suspect]
     Active Substance: TECHNETIUM TC-99M TIATIDE
     Indication: RADIOISOTOPE SCAN
     Dosage: UNKNOWN
     Route: 065
     Dates: start: 20200906, end: 20200906

REACTIONS (2)
  - Radioisotope scan abnormal [Not Recovered/Not Resolved]
  - Drug ineffective [Not Recovered/Not Resolved]

NARRATIVE: CASE EVENT DATE: 20200906
